FAERS Safety Report 4909057-2 (Version None)
Quarter: 2006Q1

REPORT INFORMATION
  Report Type: 
  Country: None (occurrence: None)
  Receive Date: 20060213
  Receipt Date: 20060130
  Transmission Date: 20060701
  Serious: Yes (Death, Hospitalization)
  Sender: FDA-Public Use
  Company Number: HQWYE582031JAN06

PATIENT
  Age: 60 Year
  Sex: Male
  Weight: 85 kg

DRUGS (3)
  1. ENBREL [Suspect]
     Indication: SPONDYLOARTHROPATHY
     Route: 058
     Dates: start: 20040801, end: 20051101
  2. ENBREL [Suspect]
     Route: 058
     Dates: end: 20051101
  3. MEDROL [Concomitant]
     Dosage: UNKNOWN DOSE DAILY

REACTIONS (3)
  - LUNG CANCER METASTATIC [None]
  - METASTASES TO LIVER [None]
  - ULCER [None]
